FAERS Safety Report 11467867 (Version 2)
Quarter: 2015Q3

REPORT INFORMATION
  Report Type: Spontaneous
  Country: US (occurrence: US)
  Receive Date: 20150908
  Receipt Date: 20150908
  Transmission Date: 20151125
  Serious: Yes (Other)
  Sender: FDA-Public Use
  Company Number: US-BAYER-2015-416243

PATIENT
  Age: 4 Year
  Sex: Female
  Weight: 19.96 kg

DRUGS (2)
  1. FLINTSTONES COMPLETE WITH CHOLINE [Concomitant]
     Indication: VITAMIN SUPPLEMENTATION
  2. MIRALAX [Suspect]
     Active Substance: POLYETHYLENE GLYCOL 3350
     Indication: CONSTIPATION
     Dosage: UNK
     Dates: start: 2013

REACTIONS (6)
  - Diarrhoea [Unknown]
  - Thirst [None]
  - Product use issue [Unknown]
  - Diarrhoea [None]
  - Fatigue [None]
  - Product use issue [None]
